FAERS Safety Report 7786927-1 (Version None)
Quarter: 2011Q3

REPORT INFORMATION
  Report Type: 
  Country: None (occurrence: None)
  Receive Date: 20110927
  Receipt Date: 20110913
  Transmission Date: 20111222
  Serious: Yes (Other)
  Sender: FDA-Public Use
  Company Number: 2011MA013481

PATIENT
  Age: 78 Year
  Sex: Female

DRUGS (2)
  1. TRIAMCINOLONE ACETONIDE [Suspect]
     Indication: DETACHMENT OF RETINAL PIGMENT EPITHELIUM
     Dosage: 4 MG;IO
     Route: 031
     Dates: start: 20060101
  2. TRIAMCINOLONE ACETONIDE [Suspect]
     Indication: CHOROIDAL NEOVASCULARISATION
     Dosage: 4 MG;IO
     Route: 031
     Dates: start: 20060101

REACTIONS (1)
  - RETINAL PIGMENT EPITHELIAL TEAR [None]
